FAERS Safety Report 20442268 (Version 1)
Quarter: 2022Q1

REPORT INFORMATION
  Report Type: Spontaneous
  Country: RO (occurrence: RO)
  Receive Date: 20220208
  Receipt Date: 20220208
  Transmission Date: 20220423
  Serious: Yes (Other)
  Sender: FDA-Public Use
  Company Number: RO-SUN PHARMACEUTICAL INDUSTRIES LTD-2022RR-326105

PATIENT
  Sex: Male
  Weight: 1.52 kg

DRUGS (2)
  1. ASPIRIN [Suspect]
     Active Substance: ASPIRIN
     Indication: Cardiac disorder
     Dosage: 75 MILLIGRAM, DAILY
     Route: 064
  2. PROPAFENONE [Suspect]
     Active Substance: PROPAFENONE
     Indication: Cardiac disorder
     Dosage: 150 MILLIGRAM, BID, 2 TABLETS PER DAY
     Route: 064

REACTIONS (3)
  - Foetal exposure during pregnancy [Unknown]
  - Premature baby [Unknown]
  - Low birth weight baby [Unknown]
